FAERS Safety Report 7386343-0 (Version None)
Quarter: 2011Q1

REPORT INFORMATION
  Report Type: 
  Country: None (occurrence: None)
  Receive Date: 20110329
  Receipt Date: 20110329
  Transmission Date: 20110831
  Serious: No
  Sender: FDA-Public Use
  Company Number: None

PATIENT
  Sex: Female
  Weight: 73.9363 kg

DRUGS (1)
  1. LEVAQUIN [Suspect]
     Dosage: 1 TABLET ONCE DAILY PO
     Route: 048
     Dates: start: 20101008, end: 20101012

REACTIONS (4)
  - ARTHRALGIA [None]
  - JOINT SWELLING [None]
  - PAIN IN EXTREMITY [None]
  - OEDEMA PERIPHERAL [None]
